FAERS Safety Report 8594265-2 (Version None)
Quarter: 2012Q3

REPORT INFORMATION
  Report Type: 
  Country: None (occurrence: None)
  Receive Date: 20120815
  Receipt Date: 20120806
  Transmission Date: 20120928
  Serious: Yes (Other)
  Sender: FDA-Public Use
  Company Number: GB-009507513-2012SP035392

PATIENT

DRUGS (1)
  1. NEXPLANON [Suspect]
     Dosage: 1 DF, UNKNOWN
     Route: 065
     Dates: start: 20110614, end: 20120621

REACTIONS (3)
  - PREGNANCY TEST FALSE POSITIVE [None]
  - ABORTION SPONTANEOUS [None]
  - PREGNANCY WITH IMPLANT CONTRACEPTIVE [None]
